FAERS Safety Report 22935844 (Version 2)
Quarter: 2023Q4

REPORT INFORMATION
  Report Type: Report from Study
  Country: HN (occurrence: HN)
  Receive Date: 20230912
  Receipt Date: 20231221
  Transmission Date: 20240109
  Serious: Yes (Death)
  Sender: FDA-Public Use
  Company Number: HN-BAYER-2023A128271

PATIENT
  Age: 64 Year
  Sex: Male

DRUGS (2)
  1. NEXAVAR [Suspect]
     Active Substance: SORAFENIB
     Indication: Hepatocellular carcinoma
     Dosage: 800MG A DAY
     Dates: start: 20230601
  2. NEXAVAR [Suspect]
     Active Substance: SORAFENIB
     Indication: Hepatocellular carcinoma
     Dosage: 600MG A DAY
     Dates: end: 20230901

REACTIONS (3)
  - Death [Fatal]
  - Peripheral swelling [None]
  - Productive cough [None]

NARRATIVE: CASE EVENT DATE: 20230902
